FAERS Safety Report 11496038 (Version 4)
Quarter: 2015Q4

REPORT INFORMATION
  Report Type: Spontaneous
  Country: US (occurrence: US)
  Receive Date: 20150911
  Receipt Date: 20151117
  Transmission Date: 20160304
  Serious: No
  Sender: FDA-Public Use
  Company Number: US-GLAXOSMITHKLINE-US2015GSK116646

PATIENT
  Sex: Female

DRUGS (22)
  1. SINEMET [Concomitant]
     Active Substance: CARBIDOPA\LEVODOPA
  2. MOTILIUM [Concomitant]
     Active Substance: DOMPERIDONE
  3. SALINE FLUSH [Concomitant]
     Active Substance: SODIUM CHLORIDE
  4. DOPHILUS [Concomitant]
  5. ADVAIR DISKUS [Suspect]
     Active Substance: FLUTICASONE PROPIONATE\SALMETEROL XINAFOATE
     Indication: CHRONIC OBSTRUCTIVE PULMONARY DISEASE
     Dosage: UNK UNK, PRN
     Dates: start: 1995
  6. MUCINEX [Concomitant]
     Active Substance: GUAIFENESIN
  7. ALBUTEROL SULFATE. [Concomitant]
     Active Substance: ALBUTEROL SULFATE
  8. PSYLLIUM FIBER [Concomitant]
  9. ADVAIR DISKUS [Suspect]
     Active Substance: FLUTICASONE PROPIONATE\SALMETEROL XINAFOATE
     Indication: ASTHMA
     Dosage: 500/50 UG,
     Route: 065
  10. FLUDROCORTISONE [Concomitant]
     Active Substance: FLUDROCORTISONE
  11. ATENOLOL. [Concomitant]
     Active Substance: ATENOLOL
  12. MELATONIN [Concomitant]
     Active Substance: MELATONIN
  13. ACIDOPHILUS [Concomitant]
     Active Substance: LACTOBACILLUS ACIDOPHILUS
  14. CLARITIN [Concomitant]
     Active Substance: LORATADINE
  15. MULTI VITAMIN [Concomitant]
     Active Substance: VITAMINS
  16. ADVAIR DISKUS [Suspect]
     Active Substance: FLUTICASONE PROPIONATE\SALMETEROL XINAFOATE
     Dosage: 1 PUFF(S), PRN
     Route: 055
     Dates: start: 201508
  17. CORTEF [Concomitant]
     Active Substance: HYDROCORTISONE
  18. ZAFIRLUKAST. [Concomitant]
     Active Substance: ZAFIRLUKAST
  19. CALCIUM [Concomitant]
     Active Substance: CALCIUM
  20. VITAMIN C [Concomitant]
     Active Substance: ASCORBIC ACID
  21. FLUTICASONE PROPIONATE. [Concomitant]
     Active Substance: FLUTICASONE PROPIONATE
  22. SPIRIVA [Concomitant]
     Active Substance: TIOTROPIUM BROMIDE MONOHYDRATE

REACTIONS (4)
  - Drug ineffective [Unknown]
  - Intentional product misuse [Unknown]
  - Sinus congestion [Recovered/Resolved]
  - Dyspnoea [Recovered/Resolved]
